FAERS Safety Report 5125780-1 (Version None)
Quarter: 2006Q4

REPORT INFORMATION
  Report Type: 
  Country: None (occurrence: None)
  Receive Date: 20061010
  Receipt Date: 20061010
  Transmission Date: 20070319
  Serious: Yes (Other)
  Sender: FDA-Public Use
  Company Number: None

PATIENT
  Sex: Female
  Weight: 67.5 kg

DRUGS (7)
  1. RAPAMUNE [Suspect]
     Indication: RENAL TRANSPLANT
     Dosage: 2 MG DAILY PO
     Route: 048
     Dates: start: 20050827, end: 20060127
  2. PROGRAF [Concomitant]
  3. TYLENOL [Concomitant]
  4. LEVOXYL [Concomitant]
  5. NORVASC [Concomitant]
  6. LIPITOR [Concomitant]
  7. PREVACID [Concomitant]

REACTIONS (1)
  - ACNE [None]
